FAERS Safety Report 12850250 (Version 2)
Quarter: 2016Q4

REPORT INFORMATION
  Report Type: Spontaneous
  Country: US (occurrence: US)
  Receive Date: 20161014
  Receipt Date: 20161014
  Transmission Date: 20170207
  Serious: Yes (Hospitalization, Other)
  Sender: FDA-Public Use
  Company Number: US-PFIZER INC-2016472067

PATIENT
  Age: 42 Year
  Sex: Male

DRUGS (9)
  1. LEUKOVORIN [Concomitant]
     Active Substance: LEUCOVORIN SODIUM
     Indication: TOXOPLASMOSIS
     Dosage: 20 MG PO EVERY 24 HOURS
     Route: 048
  2. AMPHOTERICIN B. [Concomitant]
     Active Substance: AMPHOTERICIN B
     Dosage: 450 MG (5 MG/KG) IV EVERY 24 HOURS
     Route: 042
  3. VANCOMYCIN HCL [Suspect]
     Active Substance: VANCOMYCIN HYDROCHLORIDE
     Indication: ANTIBIOTIC THERAPY
     Dosage: 1 G, EVERY 12 HOURS
  4. CEFTRIAXONE SODIUM. [Suspect]
     Active Substance: CEFTRIAXONE SODIUM
     Indication: ANTIBIOTIC THERAPY
     Dosage: 2 G, EVERY 12 HOURS
  5. DEXAMETHASONE. [Suspect]
     Active Substance: DEXAMETHASONE
     Indication: BRAIN OEDEMA
     Dosage: 6 MG, EVERY 8 HOURS
     Route: 042
  6. SULFADIAZINE. [Suspect]
     Active Substance: SULFADIAZINE
     Indication: TOXOPLASMOSIS
     Dosage: 1.5 G PO EVERY 6 HOURS
     Route: 048
  7. PYRIMETHAMINE [Suspect]
     Active Substance: PYRIMETHAMINE
     Dosage: 75 MG, DAILY
  8. ALBENDAZOLE [Suspect]
     Active Substance: ALBENDAZOLE
     Indication: NEUROCYSTICERCOSIS
     Dosage: 15 MG/KG/DAY THROUGH THE NASO-GASTRIC-TUBE EVERY 12 HOURS
  9. PYRIMETHAMINE [Suspect]
     Active Substance: PYRIMETHAMINE
     Indication: TOXOPLASMOSIS
     Dosage: 200 MG PO (1 DOSE)
     Route: 048

REACTIONS (2)
  - Encephalitis [Unknown]
  - Drug ineffective [Unknown]
